FAERS Safety Report 21193581 (Version 1)
Quarter: 2022Q3

REPORT INFORMATION
  Report Type: Spontaneous
  Country: PL (occurrence: None)
  Receive Date: 20220810
  Receipt Date: 20220810
  Transmission Date: 20221027
  Serious: Yes (Other)
  Sender: FDA-Public Use
  Company Number: PL-ROCHE-3153755

PATIENT
  Age: 39 Year
  Sex: Male

DRUGS (7)
  1. ALECENSA [Suspect]
     Active Substance: ALECTINIB HYDROCHLORIDE
     Indication: Lung adenocarcinoma
     Route: 065
  2. ALECENSA [Suspect]
     Active Substance: ALECTINIB HYDROCHLORIDE
     Indication: Non-small cell lung cancer
  3. CRIZOTINIB [Concomitant]
     Active Substance: CRIZOTINIB
  4. CISPLATIN [Concomitant]
     Active Substance: CISPLATIN
  5. PEMETREXED [Concomitant]
     Active Substance: PEMETREXED
  6. HEPARIN [Concomitant]
     Active Substance: HEPARIN SODIUM
  7. LORLATINIB [Concomitant]
     Active Substance: LORLATINIB

REACTIONS (3)
  - Sinus bradycardia [Unknown]
  - Disease progression [Unknown]
  - Cancer pain [Unknown]
